FAERS Safety Report 10550674 (Version 1)
Quarter: 2014Q4

REPORT INFORMATION
  Report Type: Spontaneous
  Country: TW (occurrence: TW)
  Receive Date: 20141029
  Receipt Date: 20141029
  Transmission Date: 20150529
  Serious: Yes (Death, Hospitalization)
  Sender: FDA-Public Use
  Company Number: TW-UNITED THERAPEUTICS-UNT-2014-009708

PATIENT
  Sex: Female

DRUGS (1)
  1. REMODULIN [Suspect]
     Active Substance: TREPROSTINIL
     Indication: PULMONARY ARTERIAL HYPERTENSION
     Dosage: 0.088 ?G/KG, CONTINUING
     Route: 058
     Dates: start: 20131220

REACTIONS (2)
  - Dyspnoea [Fatal]
  - Pyrexia [Fatal]
